FAERS Safety Report 10024772 (Version 1)
Quarter: 2014Q1

REPORT INFORMATION
  Report Type: Report from Study
  Country: US (occurrence: US)
  Receive Date: 20140320
  Receipt Date: 20140320
  Transmission Date: 20141002
  Serious: Yes (Other)
  Sender: FDA-Public Use
  Company Number: US-ABBVIE-14P-163-1212025-00

PATIENT
  Age: 73 Year
  Sex: Male
  Weight: 78.54 kg

DRUGS (8)
  1. ANDROGEL [Suspect]
     Indication: PRODUCT USED FOR UNKNOWN INDICATION
     Route: 061
  2. ANDROGEL [Suspect]
     Indication: PRODUCT USED FOR UNKNOWN INDICATION
     Dosage: 3 PUMPS DAILY
     Route: 061
  3. ANDROGEL [Suspect]
     Dates: start: 20140312
  4. CELEXA [Concomitant]
     Indication: PRODUCT USED FOR UNKNOWN INDICATION
  5. RITALIN [Concomitant]
     Indication: PRODUCT USED FOR UNKNOWN INDICATION
  6. ATENOLOL [Concomitant]
     Indication: PRODUCT USED FOR UNKNOWN INDICATION
  7. LOSARTAN [Concomitant]
     Indication: PRODUCT USED FOR UNKNOWN INDICATION
  8. ZOCOR [Concomitant]
     Indication: PRODUCT USED FOR UNKNOWN INDICATION

REACTIONS (2)
  - Shoulder arthroplasty [Recovered/Resolved]
  - Hip arthroplasty [Recovered/Resolved]
